FAERS Safety Report 21076276 (Version 2)
Quarter: 2022Q3

REPORT INFORMATION
  Report Type: Spontaneous
  Country: US (occurrence: US)
  Receive Date: 20220713
  Receipt Date: 20220815
  Transmission Date: 20221027
  Serious: Yes (Other)
  Sender: FDA-Public Use
  Company Number: US-ORGANON-O2207USA000851

PATIENT
  Sex: Female
  Weight: 54.875 kg

DRUGS (1)
  1. NEXPLANON [Suspect]
     Active Substance: ETONOGESTREL
     Indication: Contraception
     Dosage: 1 IMPLANT OF 68 MILLIGRAM IN LEFT ARM
     Route: 059
     Dates: start: 20211105, end: 20220708

REACTIONS (5)
  - Device expulsion [Recovered/Resolved]
  - Implant site scar [Not Recovered/Not Resolved]
  - Keloid scar [Not Recovered/Not Resolved]
  - Implant site fibrosis [Unknown]
  - Complication associated with device [Recovered/Resolved]

NARRATIVE: CASE EVENT DATE: 20220101
